FAERS Safety Report 7760720-8 (Version None)
Quarter: 2011Q3

REPORT INFORMATION
  Report Type: 
  Country: None (occurrence: None)
  Receive Date: 20110919
  Receipt Date: 20110909
  Transmission Date: 20111222
  Serious: Yes (Hospitalization)
  Sender: FDA-Public Use
  Company Number: US-ASTRAZENECA-2011SE54213

PATIENT
  Age: 37 Year
  Sex: Female

DRUGS (8)
  1. GABAPENEM [Concomitant]
  2. GABAPENEM [Concomitant]
     Indication: PAIN
  3. CENTROID [Concomitant]
     Indication: THYROID DISORDER
  4. CENTROID [Concomitant]
  5. SEROQUEL [Suspect]
     Indication: BIPOLAR DISORDER
     Route: 048
     Dates: start: 20100301
  6. PRILOSEC [Concomitant]
     Route: 048
  7. LAMIPAL [Concomitant]
     Dosage: 200 QHS
  8. ZEANAFLEX [Concomitant]

REACTIONS (2)
  - DUODENAL ULCER [None]
  - DYSPHONIA [None]
